FAERS Safety Report 5585765-8 (Version None)
Quarter: 2008Q1

REPORT INFORMATION
  Report Type: 
  Country: None (occurrence: None)
  Receive Date: 20080109
  Receipt Date: 20071214
  Transmission Date: 20080703
  Serious: No
  Sender: FDA-Public Use
  Company Number: US-BAYER-200712355BCC

PATIENT
  Sex: Female

DRUGS (13)
  1. ALEVE [Suspect]
     Indication: ARTHRITIS
     Dosage: TOTAL DAILY DOSE: 110 MG  UNIT DOSE: 220 MG
     Route: 048
     Dates: start: 20070722
  2. ALEVE [Suspect]
     Dosage: TOTAL DAILY DOSE: 220 MG  UNIT DOSE: 220 MG
     Route: 048
     Dates: start: 20070720, end: 20070721
  3. COQ10 [Concomitant]
  4. CALCIUM GLUCONATE [Concomitant]
  5. SELENIUM [Concomitant]
  6. GLUCOSAMINE CHONDROITIN [Concomitant]
  7. COD LIVER OIL [Concomitant]
  8. VITAMIN B [Concomitant]
  9. ASCORBIC ACID [Concomitant]
  10. VITAMIN D [Concomitant]
  11. VITAMIN B5 [Concomitant]
  12. TIMOPTIC [Concomitant]
  13. SYNTHROID [Concomitant]

REACTIONS (3)
  - ABNORMAL SENSATION IN EYE [None]
  - ARTHRALGIA [None]
  - HEADACHE [None]
